FAERS Safety Report 4683318-7 (Version None)
Quarter: 2005Q2

REPORT INFORMATION
  Report Type: 
  Country: None (occurrence: None)
  Receive Date: 20050602
  Receipt Date: 20050216
  Transmission Date: 20051028
  Serious: No
  Sender: FDA-Public Use
  Company Number: 200510268BWH

PATIENT

DRUGS (1)
  1. LEVITRA [Suspect]

REACTIONS (2)
  - NASAL CONGESTION [None]
  - RHINITIS [None]
